FAERS Safety Report 7753804-1 (Version None)
Quarter: 2011Q3

REPORT INFORMATION
  Report Type: 
  Country: None (occurrence: None)
  Receive Date: 20110915
  Receipt Date: 20110908
  Transmission Date: 20111222
  Serious: Yes (Hospitalization, Disabling)
  Sender: FDA-Public Use
  Company Number: US-MERCK-1103USA00267

PATIENT
  Age: 57 Year
  Sex: Female
  Weight: 75 kg

DRUGS (6)
  1. ALENDRONATE SODIUM [Suspect]
     Indication: OSTEOPENIA
     Route: 048
     Dates: start: 20080219, end: 20091001
  2. CALCIUM (UNSPECIFIED) [Concomitant]
     Route: 065
  3. VITAMINS (UNSPECIFIED) [Concomitant]
     Route: 065
  4. FOSAMAX [Suspect]
     Indication: OSTEOPENIA
     Route: 048
     Dates: start: 20040801, end: 20080201
  5. VITAMIN E [Concomitant]
     Route: 065
  6. FOSAMAX [Suspect]
     Indication: OSTEOPOROSIS
     Route: 048
     Dates: start: 20080911

REACTIONS (30)
  - FEMUR FRACTURE [None]
  - FOOT DEFORMITY [None]
  - DRUG INTOLERANCE [None]
  - POST PROCEDURAL HAEMORRHAGE [None]
  - NASAL DISORDER [None]
  - TELANGIECTASIA [None]
  - MUSCLE STRAIN [None]
  - DENTAL NECROSIS [None]
  - ADVERSE DRUG REACTION [None]
  - INCORRECT DOSE ADMINISTERED [None]
  - LYMPHADENOPATHY [None]
  - SKIN LESION [None]
  - VULVA CYST [None]
  - TOOTH ABSCESS [None]
  - FOREIGN BODY [None]
  - PERIODONTITIS [None]
  - BLOOD CHOLESTEROL INCREASED [None]
  - INCREASED TENDENCY TO BRUISE [None]
  - FALL [None]
  - LOCALISED INFECTION [None]
  - PRURITUS [None]
  - GASTROOESOPHAGEAL REFLUX DISEASE [None]
  - OEDEMA PERIPHERAL [None]
  - MOUTH ULCERATION [None]
  - ASTHENIA [None]
  - VIRAL PHARYNGITIS [None]
  - SACROILIITIS [None]
  - PAIN IN EXTREMITY [None]
  - HYPERLIPIDAEMIA [None]
  - KNEE DEFORMITY [None]
